FAERS Safety Report 5698953-7 (Version None)
Quarter: 2008Q2

REPORT INFORMATION
  Report Type: 
  Country: None (occurrence: None)
  Receive Date: 20080408
  Receipt Date: 20060804
  Transmission Date: 20081010
  Serious: No
  Sender: FDA-Public Use
  Company Number: US-BAYER-US-2006-022409

PATIENT
  Age: 41 Year
  Sex: Female

DRUGS (1)
  1. ULTRAVIST (PHARMACY BULK) [Suspect]
     Indication: COMPUTERISED TOMOGRAM ABDOMEN
     Dosage: UNIT DOSE: 100 ML
     Route: 042

REACTIONS (8)
  - CONJUNCTIVAL OEDEMA [None]
  - EYE PRURITUS [None]
  - OCULAR HYPERAEMIA [None]
  - PERIORBITAL OEDEMA [None]
  - PRURITUS [None]
  - SNEEZING [None]
  - TACHYCARDIA [None]
  - THROAT TIGHTNESS [None]
